FAERS Safety Report 14533122 (Version 1)
Quarter: 2018Q1

REPORT INFORMATION
  Report Type: Spontaneous
  Country: US (occurrence: US)
  Receive Date: 20180215
  Receipt Date: 20180215
  Transmission Date: 20180509
  Serious: No
  Sender: FDA-Public Use
  Company Number: US-ALKEM LABORATORIES LIMITED-US-ALKEM-2017-00186

PATIENT
  Age: 61 Year
  Sex: Female
  Weight: 64 kg

DRUGS (5)
  1. CHANTIX [Interacting]
     Active Substance: VARENICLINE TARTRATE
     Dosage: TOOK A FULL 0.5 MG TABLET
     Dates: start: 20170207
  2. GABAPENTIN. [Interacting]
     Active Substance: GABAPENTIN
     Dosage: 2 DF, QID
     Route: 048
  3. GABAPENTIN. [Interacting]
     Active Substance: GABAPENTIN
     Dosage: 3 DF, QD
  4. GABAPENTIN. [Suspect]
     Active Substance: GABAPENTIN
     Indication: NEUROPATHY PERIPHERAL
     Dosage: 1 DF (300 MG), QID
     Route: 048
     Dates: start: 20170210
  5. CHANTIX [Interacting]
     Active Substance: VARENICLINE TARTRATE
     Indication: SMOKING CESSATION THERAPY
     Dosage: 0.5 MG (TOOK A HALF TABLET FOR 2 WEEKS)
     Dates: start: 2017

REACTIONS (4)
  - Feeling abnormal [Not Recovered/Not Resolved]
  - Fall [Unknown]
  - Drug interaction [Unknown]
  - Somnolence [Not Recovered/Not Resolved]

NARRATIVE: CASE EVENT DATE: 201702
